FAERS Safety Report 4581123-3 (Version None)
Quarter: 2005Q1

REPORT INFORMATION
  Report Type: 
  Country: None (occurrence: None)
  Receive Date: 20050127
  Receipt Date: 20040820
  Transmission Date: 20050727
  Serious: No
  Sender: FDA-Public Use
  Company Number: USA040876097

PATIENT
  Age: 41 Year
  Sex: Female
  Weight: 77 kg

DRUGS (2)
  1. STRATTERA [Suspect]
     Indication: ANXIETY DISORDER
     Dosage: 10 MG DAY
     Dates: start: 20040818
  2. PAXIL [Concomitant]

REACTIONS (4)
  - CENTRAL NERVOUS SYSTEM STIMULATION [None]
  - DRY MOUTH [None]
  - HYPERHIDROSIS [None]
  - INSOMNIA [None]
